FAERS Safety Report 6954849 (Version 13)
Quarter: 2013Q2

REPORT INFORMATION
  Report Type: Report from Study
  Country: CA (occurrence: CA)
  Receive Date: 20090327
  Receipt Date: 20130530
  Transmission Date: 20140414
  Serious: Yes (Hospitalization, Other)
  Sender: FDA-Public Use
  Company Number: CA-ROCHE-GNE279139

PATIENT
  Age: 33 Year
  Sex: Female

DRUGS (7)
  1. XOLAIR [Suspect]
     Indication: ASTHMA
     Dosage: 375 MG, Q2W
     Route: 058
     Dates: start: 20070413
  2. XOLAIR [Suspect]
     Dosage: 300 MG, Q2W
     Route: 058
     Dates: start: 20070413
  3. XOLAIR [Suspect]
     Dosage: 375 MG, Q2W
     Route: 058
     Dates: start: 20090902
  4. XOLAIR [Suspect]
     Dosage: 375 MG, Q2W
     Route: 058
     Dates: start: 20100203
  5. XOLAIR [Suspect]
     Route: 058
     Dates: start: 20090401
  6. XOLAIR [Suspect]
     Route: 065
     Dates: start: 20130329
  7. XOLAIR [Suspect]
     Route: 065
     Dates: start: 20130524

REACTIONS (23)
  - Decreased appetite [Unknown]
  - Loss of consciousness [Unknown]
  - Fall [Unknown]
  - Convulsion [Unknown]
  - Nasopharyngitis [Unknown]
  - Pyrexia [Unknown]
  - Rash pustular [Unknown]
  - Rhinitis allergic [Unknown]
  - Pneumonia [Unknown]
  - Contusion [Unknown]
  - Swelling [Unknown]
  - Pain [Unknown]
  - Blood pressure decreased [Unknown]
  - Depressed mood [Unknown]
  - Asthenia [Unknown]
  - Weight decreased [Unknown]
  - Sneezing [Unknown]
  - Eye pain [Unknown]
  - Oropharyngeal pain [Unknown]
  - Cough [Unknown]
  - Productive cough [Unknown]
  - Treatment noncompliance [Unknown]
  - Heart rate increased [Unknown]
